FAERS Safety Report 15775486 (Version 1)
Quarter: 2018Q4

REPORT INFORMATION
  Report Type: Spontaneous
  Country: UA (occurrence: UA)
  Receive Date: 20181231
  Receipt Date: 20181231
  Transmission Date: 20190205
  Serious: Yes (Death)
  Sender: FDA-Public Use
  Company Number: UA-ROCHE-2218649

PATIENT
  Age: 32 Year
  Sex: Female

DRUGS (1)
  1. TECENTRIQ [Suspect]
     Active Substance: ATEZOLIZUMAB
     Indication: LUNG ADENOCARCINOMA
     Dosage: ON 01/NOV/2018, SHE RECEIVED ANOTHER DOSE OF ATEZOLIZUMAB.
     Route: 042
     Dates: start: 20181011

REACTIONS (4)
  - General physical health deterioration [Unknown]
  - Asthenia [Unknown]
  - Death [Fatal]
  - Leukocytosis [Unknown]

NARRATIVE: CASE EVENT DATE: 20181119
